FAERS Safety Report 13545235 (Version 9)
Quarter: 2017Q3

REPORT INFORMATION
  Report Type: Report from Study
  Country: US (occurrence: US)
  Receive Date: 20170515
  Receipt Date: 20170908
  Transmission Date: 20171127
  Serious: Yes (Death, Hospitalization, Other)
  Sender: FDA-Public Use
  Company Number: US-GILEAD-2017-0272488

PATIENT
  Age: 64 Year
  Sex: Female

DRUGS (5)
  1. ADEMPAS [Concomitant]
     Active Substance: RIOCIGUAT
  2. AMBRISENTAN [Suspect]
     Active Substance: AMBRISENTAN
     Dosage: 5 MG, QD
     Route: 065
     Dates: start: 20160908
  3. REMODULIN [Suspect]
     Active Substance: TREPROSTINIL
     Indication: PRODUCT USED FOR UNKNOWN INDICATION
     Dosage: UNK
     Route: 065
  4. AMBRISENTAN [Suspect]
     Active Substance: AMBRISENTAN
     Indication: PRODUCT USED FOR UNKNOWN INDICATION
     Dosage: 10 MG, QD
     Route: 065
     Dates: start: 20160908
  5. AMBRISENTAN [Suspect]
     Active Substance: AMBRISENTAN
     Dosage: 5 MG, QD
     Route: 065
     Dates: start: 20170201

REACTIONS (22)
  - Pulmonary arterial hypertension [Fatal]
  - Flatulence [Not Recovered/Not Resolved]
  - Anxiety [Unknown]
  - Urinary tract infection [Not Recovered/Not Resolved]
  - Oedema peripheral [Unknown]
  - Endotracheal intubation [Unknown]
  - Dyspnoea [Unknown]
  - Dysgeusia [Not Recovered/Not Resolved]
  - Jugular vein distension [Unknown]
  - Dyspnoea [Not Recovered/Not Resolved]
  - Renal disorder [Unknown]
  - Drooling [Not Recovered/Not Resolved]
  - Epistaxis [Not Recovered/Not Resolved]
  - Rales [Unknown]
  - Thrombosis [Unknown]
  - Diarrhoea [Not Recovered/Not Resolved]
  - Duodenal ulcer haemorrhage [Unknown]
  - Urinary tract infection [Unknown]
  - Hepatomegaly [Unknown]
  - Skin discolouration [Unknown]
  - Peripheral coldness [Unknown]
  - Oedema [Unknown]
